FAERS Safety Report 9621060 (Version 2)
Quarter: 2013Q4

REPORT INFORMATION
  Report Type: Spontaneous
  Country: HU (occurrence: HU)
  Receive Date: 20131015
  Receipt Date: 20131111
  Transmission Date: 20140711
  Serious: Yes (Hospitalization, Other)
  Sender: FDA-Public Use
  Company Number: HU-TEVA-436236ISR

PATIENT
  Age: 79 Year
  Sex: Female
  Weight: 50 kg

DRUGS (12)
  1. ETOPOSIDE [Suspect]
     Indication: DIFFUSE LARGE B-CELL LYMPHOMA
     Dates: start: 200708, end: 2007
  2. EPIRUBICIN [Suspect]
     Indication: DIFFUSE LARGE B-CELL LYMPHOMA
     Dosage: SEVERAL CYCLES
     Dates: start: 20061212, end: 200709
  3. METHYLPREDNISOLONE [Suspect]
     Indication: DIFFUSE LARGE B-CELL LYMPHOMA
     Dosage: SEVERAL CYCLES
     Dates: start: 20061212, end: 200710
  4. TRITACE HCT [Concomitant]
     Indication: HYPERTENSION
     Route: 048
  5. TRITACE HCT [Concomitant]
     Route: 048
  6. AMLIPIN [Concomitant]
     Indication: HYPERTENSION
     Route: 048
  7. LOKREN [Concomitant]
     Indication: HYPERTENSION
     Route: 048
  8. OMEPRAZOL [Concomitant]
     Indication: DUODENAL ULCER
     Route: 048
  9. DORMICUM [Concomitant]
     Route: 048
  10. ALGOPYRIN [Concomitant]
     Route: 048
  11. CYCLOPHOSPHAMIDE [Concomitant]
     Indication: DIFFUSE LARGE B-CELL LYMPHOMA
  12. VINCRISTIN [Concomitant]
     Indication: DIFFUSE LARGE B-CELL LYMPHOMA

REACTIONS (6)
  - Pancytopenia [Recovered/Resolved]
  - Anaemia [Recovered/Resolved]
  - Weight decreased [Unknown]
  - Nausea [Recovered/Resolved]
  - Night sweats [Unknown]
  - Pyrexia [Recovered/Resolved]
